FAERS Safety Report 18032189 (Version 1)
Quarter: 2020Q3

REPORT INFORMATION
  Report Type: Spontaneous
  Country: JP (occurrence: JP)
  Receive Date: 20200716
  Receipt Date: 20200716
  Transmission Date: 20201103
  Serious: Yes (Hospitalization)
  Sender: FDA-Public Use
  Company Number: JP-JNJFOC-20200720053

PATIENT
  Age: 65 Year
  Sex: Female
  Weight: 56.3 kg

DRUGS (3)
  1. LANSOPRAZOLE. [Suspect]
     Active Substance: LANSOPRAZOLE
     Indication: PRODUCT USED FOR UNKNOWN INDICATION
     Dosage: 15 MILLIGRAM, 1/DAY
     Route: 048
     Dates: start: 20191225, end: 20200107
  2. TRAMADOL HYDROCHLORIDE. [Suspect]
     Active Substance: TRAMADOL HYDROCHLORIDE
     Indication: CANCER PAIN
     Dosage: 25 MILLIGRAM, 3/DAY
     Route: 048
     Dates: start: 20191225, end: 20200107
  3. TRAMADOL HYDROCHLORIDE. [Suspect]
     Active Substance: TRAMADOL HYDROCHLORIDE
     Dosage: 25 MILLIGRAM, AS NEEDED
     Route: 048
     Dates: start: 20191225, end: 20200107

REACTIONS (1)
  - Platelet count decreased [Unknown]
